FAERS Safety Report 12535770 (Version 1)
Quarter: 2016Q3

REPORT INFORMATION
  Report Type: Report from Study
  Country: KR (occurrence: KR)
  Receive Date: 20160707
  Receipt Date: 20160707
  Transmission Date: 20161109
  Serious: Yes (Hospitalization)
  Sender: FDA-Public Use
  Company Number: KR-ROCHE-1787920

PATIENT
  Sex: Female

DRUGS (22)
  1. DOCETAXEL. [Suspect]
     Active Substance: DOCETAXEL
     Indication: BREAST CANCER
     Route: 042
     Dates: start: 20160304
  2. NEURONTIN (SOUTH KOREA) [Concomitant]
     Route: 048
     Dates: start: 20160304
  3. MAXIPIME [Concomitant]
     Active Substance: CEFEPIME HYDROCHLORIDE
     Dosage: PREVENTION OF INFECTION
     Route: 042
     Dates: start: 20160313, end: 20160607
  4. URSA [Concomitant]
     Indication: ASPARTATE AMINOTRANSFERASE INCREASED
     Route: 048
     Dates: start: 20160425
  5. URSA [Concomitant]
     Indication: ALANINE AMINOTRANSFERASE INCREASED
  6. ONSERAN [Concomitant]
     Indication: NAUSEA
     Route: 042
     Dates: start: 20160514
  7. EMEND [Concomitant]
     Active Substance: APREPITANT
     Indication: VOMITING
     Route: 048
     Dates: start: 20160605, end: 20160607
  8. PERTUZUMAB [Suspect]
     Active Substance: PERTUZUMAB
     Indication: BREAST CANCER
     Route: 042
     Dates: start: 20160304
  9. TANTUM [Concomitant]
     Active Substance: BENZYDAMINE HYDROCHLORIDE
     Dosage: PREVENTION OF STOMATITIS
     Route: 050
     Dates: start: 20160304
  10. KYTRIL [Concomitant]
     Active Substance: GRANISETRON HYDROCHLORIDE
     Dosage: PREVENTION FOR NAUSEA
     Route: 048
     Dates: start: 20160305
  11. KETORAC [Concomitant]
     Indication: FEBRILE NEUTROPENIA
     Route: 042
     Dates: start: 20160304, end: 20160516
  12. SANCUSO [Concomitant]
     Active Substance: GRANISETRON
     Dosage: PREMEDICATION FOR NAUSEA
     Route: 065
     Dates: start: 20160303
  13. SUSPEN ER [Concomitant]
     Dosage: PREMEDICATION FOR NEURALGIA
     Route: 048
     Dates: start: 20160304
  14. NEOPLATIN (SOUTH KOREA) [Concomitant]
     Indication: BREAST CANCER
     Route: 042
     Dates: start: 20160304
  15. NASERON [Concomitant]
     Dosage: PREMEDICATION FOR NAUSEA
     Route: 042
     Dates: start: 20160304
  16. LEUCOSTIM [Concomitant]
     Active Substance: FILGRASTIM
     Indication: NEUTROPENIA
     Route: 042
     Dates: start: 20160605, end: 20160606
  17. TRASTUZUMAB [Suspect]
     Active Substance: TRASTUZUMAB
     Indication: BREAST CANCER
     Route: 042
     Dates: start: 20160304
  18. CURAN [Concomitant]
     Active Substance: RANITIDINE HYDROCHLORIDE
     Dosage: PREVENTION FOR URTICARIA
     Route: 048
     Dates: start: 20160304
  19. DEXAMETHASONE. [Concomitant]
     Active Substance: DEXAMETHASONE
     Dosage: PREMEDICATION FOR NEUROPATHY
     Route: 042
     Dates: start: 20160303
  20. LEUCOSTIM [Concomitant]
     Active Substance: FILGRASTIM
     Route: 042
     Dates: start: 20160425, end: 20160425
  21. LEUCOSTIM [Concomitant]
     Active Substance: FILGRASTIM
     Route: 042
     Dates: start: 20160626, end: 20160627
  22. SMECTA [Concomitant]
     Active Substance: MONTMORILLONITE
     Indication: DIARRHOEA
     Route: 048
     Dates: start: 20160617, end: 20160617

REACTIONS (2)
  - Cholecystitis acute [Recovered/Resolved]
  - Febrile neutropenia [Recovered/Resolved]

NARRATIVE: CASE EVENT DATE: 20160312
